FAERS Safety Report 13075679 (Version 2)
Quarter: 2017Q1

REPORT INFORMATION
  Report Type: Spontaneous
  Country: AT (occurrence: AT)
  Receive Date: 20161230
  Receipt Date: 20170103
  Transmission Date: 20170428
  Serious: Yes (Death, Other)
  Sender: FDA-Public Use
  Company Number: AT-JNJFOC-20161225481

PATIENT

DRUGS (4)
  1. CISPLATIN. [Suspect]
     Active Substance: CISPLATIN
     Indication: MALIGNANT PERITONEAL NEOPLASM
     Route: 033
  2. DOXORUBICIN HYDROCHLORIDE. [Suspect]
     Active Substance: DOXORUBICIN HYDROCHLORIDE
     Indication: MALIGNANT PERITONEAL NEOPLASM
     Route: 033
  3. OXALIPLATIN. [Suspect]
     Active Substance: OXALIPLATIN
     Indication: MALIGNANT PERITONEAL NEOPLASM
     Route: 033
  4. MITOMYCIN C [Suspect]
     Active Substance: MITOMYCIN
     Indication: MALIGNANT PERITONEAL NEOPLASM
     Route: 033

REACTIONS (6)
  - Anastomotic leak [Unknown]
  - Adverse event [Unknown]
  - Off label use [Unknown]
  - Death [Fatal]
  - Product use issue [Unknown]
  - Anal incontinence [Unknown]
